FAERS Safety Report 7450373-0 (Version None)
Quarter: 2011Q2

REPORT INFORMATION
  Report Type: 
  Country: None (occurrence: None)
  Receive Date: 20110502
  Receipt Date: 20110421
  Transmission Date: 20111010
  Serious: Yes (Other)
  Sender: FDA-Public Use
  Company Number: ZA-JNJFOC-20110400108

PATIENT
  Sex: Male
  Weight: 99 kg

DRUGS (4)
  1. ATACAND [Concomitant]
     Indication: BLOOD PRESSURE
     Route: 065
  2. GLUCOPHAGE [Concomitant]
     Indication: DIABETES MELLITUS
     Route: 065
  3. TRAMADOL HYDROCHLORIDE/ACETAMINOPHEN [Suspect]
     Indication: PAIN
     Dosage: 2 TABLETS EVERY 6 HOURS AND TOOK 10 TABLETS IN TOTAL
     Route: 065
  4. PRAVASTAT [Concomitant]
     Indication: BLOOD CHOLESTEROL
     Route: 065

REACTIONS (4)
  - HYPERHIDROSIS [None]
  - LOSS OF CONSCIOUSNESS [None]
  - EYE MOVEMENT DISORDER [None]
  - NAUSEA [None]
